FAERS Safety Report 25430381 (Version 1)
Quarter: 2025Q2

REPORT INFORMATION
  Report Type: Spontaneous
  Country: PL (occurrence: PL)
  Receive Date: 20250612
  Receipt Date: 20250612
  Transmission Date: 20250716
  Serious: Yes (Hospitalization, Other)
  Sender: ABBVIE
  Company Number: PL-ABBVIE-6317981

PATIENT
  Age: 60 Year
  Sex: Female

DRUGS (4)
  1. VENETOCLAX [Suspect]
     Active Substance: VENETOCLAX
     Indication: Chronic lymphocytic leukaemia recurrent
     Route: 048
     Dates: start: 201904
  2. VENETOCLAX [Suspect]
     Active Substance: VENETOCLAX
     Indication: Chronic lymphocytic leukaemia recurrent
     Route: 048
  3. ALLOPURINOL [Concomitant]
     Active Substance: ALLOPURINOL
     Indication: Prophylaxis
     Dates: start: 201904
  4. RITUXIMAB [Concomitant]
     Active Substance: RITUXIMAB
     Indication: Chronic lymphocytic leukaemia
     Dates: start: 2016

REACTIONS (23)
  - Hepatic steatosis [Not Recovered/Not Resolved]
  - Cytopenia [Unknown]
  - Type 2 diabetes mellitus [Unknown]
  - Procalcitonin increased [Unknown]
  - Infection [Recovered/Resolved]
  - Platelet count decreased [Unknown]
  - Tuberculosis [Unknown]
  - Pneumonia [Unknown]
  - Hyperferritinaemia [Unknown]
  - Abdominal pain [Unknown]
  - Myelodysplastic syndrome [Unknown]
  - Myelofibrosis [Unknown]
  - Blood glucose abnormal [Unknown]
  - Splenomegaly [Recovering/Resolving]
  - Neutropenia [Unknown]
  - Hyperbilirubinaemia [Unknown]
  - Hepatomegaly [Unknown]
  - Steroid diabetes [Unknown]
  - Systemic mycosis [Unknown]
  - Diabetes mellitus [Unknown]
  - Allogenic stem cell transplantation [Unknown]
  - Liver disorder [Recovering/Resolving]
  - White blood cell count decreased [Unknown]

NARRATIVE: CASE EVENT DATE: 20190401
